FAERS Safety Report 14115555 (Version 2)
Quarter: 2018Q3

REPORT INFORMATION
  Report Type: Spontaneous
  Country: JP (occurrence: JP)
  Receive Date: 20171023
  Receipt Date: 20180926
  Transmission Date: 20181010
  Serious: Yes (Hospitalization)
  Sender: FDA-Public Use
  Company Number: JP-ORPHAN EUROPE-2031162

PATIENT
  Age: 24 Month
  Sex: Female

DRUGS (9)
  1. L?CARNITINE [Concomitant]
     Active Substance: LEVOCARNITINE
  2. CARBAGLU [Suspect]
     Active Substance: CARGLUMIC ACID
     Route: 050
     Dates: start: 20170524, end: 20180528
  3. CARBAGLU [Suspect]
     Active Substance: CARGLUMIC ACID
     Route: 050
     Dates: start: 20170530, end: 20170531
  4. LACTULOSE. [Concomitant]
     Active Substance: LACTULOSE
  5. CARBOCISTEINE [Concomitant]
     Active Substance: CARBOCYSTEINE
  6. CARBAGLU [Suspect]
     Active Substance: CARGLUMIC ACID
     Indication: METHYLMALONIC ACIDURIA
     Route: 050
     Dates: start: 20170515, end: 20170520
  7. CARBAGLU [Suspect]
     Active Substance: CARGLUMIC ACID
     Route: 050
     Dates: start: 20170723, end: 20170725
  8. CARBAGLU [Concomitant]
     Active Substance: CARGLUMIC ACID
     Route: 050
     Dates: start: 20170830, end: 20170831
  9. CARBAGLU [Concomitant]
     Active Substance: CARGLUMIC ACID
     Route: 050
     Dates: start: 20170921

REACTIONS (1)
  - Condition aggravated [Unknown]

NARRATIVE: CASE EVENT DATE: 20170919
